FAERS Safety Report 24341140 (Version 1)
Quarter: 2024Q3

REPORT INFORMATION
  Report Type: Report from Study
  Country: CA (occurrence: CA)
  Receive Date: 20240919
  Receipt Date: 20240919
  Transmission Date: 20241016
  Serious: Yes (Other)
  Sender: ABBVIE
  Company Number: CA-ABBVIE-5816626

PATIENT
  Age: 42 Year
  Sex: Male
  Weight: 77 kg

DRUGS (2)
  1. SKYRIZI [Suspect]
     Active Substance: RISANKIZUMAB-RZAA
     Indication: Crohn^s disease
     Route: 058
     Dates: start: 20230811
  2. SKYRIZI [Suspect]
     Active Substance: RISANKIZUMAB-RZAA
     Route: 058

REACTIONS (15)
  - Surgery [Unknown]
  - Diarrhoea [Unknown]
  - Mouth ulceration [Unknown]
  - Abdominal pain [Unknown]
  - Arthralgia [Unknown]
  - Pain in extremity [Unknown]
  - Aphthous ulcer [Unknown]
  - Frequent bowel movements [Unknown]
  - Uveitis [Unknown]
  - Abdominal discomfort [Unknown]
  - Inguinal hernia [Unknown]
  - Neuralgia [Unknown]
  - Insomnia [Unknown]
  - Abdominal discomfort [Unknown]
  - Cardiac disorder [Unknown]

NARRATIVE: CASE EVENT DATE: 20240101
